FAERS Safety Report 12413016 (Version 1)
Quarter: 2016Q2

REPORT INFORMATION
  Report Type: Report from Study
  Country: US (occurrence: US)
  Receive Date: 20160527
  Receipt Date: 20160527
  Transmission Date: 20160815
  Serious: Yes (Death, Other)
  Sender: FDA-Public Use
  Company Number: US-REGENERON PHARMACEUTICALS, INC.-2016-14651

PATIENT

DRUGS (24)
  1. EYLEA [Suspect]
     Active Substance: AFLIBERCEPT
     Dosage: 2 MG MILLIGRAM(S), EVERY 4 WEEKS
     Dates: start: 20160323, end: 20160323
  2. LUCENTIS [Concomitant]
     Active Substance: RANIBIZUMAB
     Indication: PRODUCT USED FOR UNKNOWN INDICATION
     Dosage: 0.5 ML MILLILITRE(S), AS NECESSARY
     Route: 031
     Dates: start: 20110929
  3. PRESERVISION AREDS [Concomitant]
     Active Substance: MINERALS\VITAMINS
     Indication: AGE-RELATED MACULAR DEGENERATION
     Dosage: UNK, BID
     Route: 048
     Dates: start: 20110518
  4. TROPICAMIDE. [Concomitant]
     Active Substance: TROPICAMIDE
     Indication: PREMEDICATION
     Dosage: 1 GTT DROP(S), AS NECESSARY
     Route: 061
     Dates: start: 20150729
  5. LASIX [Concomitant]
     Active Substance: FUROSEMIDE
     Indication: PRODUCT USED FOR UNKNOWN INDICATION
     Dosage: 40 MG MILLIGRAM(S), 3XWEEK
     Route: 048
     Dates: start: 20160207
  6. COUMADIN [Concomitant]
     Active Substance: WARFARIN SODIUM
     Indication: PRODUCT USED FOR UNKNOWN INDICATION
     Dosage: 2.5 MG MILLIGRAM(S),4XWEEK
     Route: 048
     Dates: start: 201405, end: 20151104
  7. OMEPRAZOLE. [Concomitant]
     Active Substance: OMEPRAZOLE
     Indication: PRODUCT USED FOR UNKNOWN INDICATION
     Dosage: 20 MG MILLIGRAM(S), QD
     Route: 048
     Dates: start: 2011
  8. REFRESH TEARS [Concomitant]
     Active Substance: CARBOXYMETHYLCELLULOSE SODIUM
     Indication: PROPHYLAXIS
     Dosage: 3 GTT DROP(S), AS NECESSARY
     Route: 061
     Dates: start: 20150811
  9. LASIX [Concomitant]
     Active Substance: FUROSEMIDE
     Dosage: 20 MG MILLIGRAM(S), 4XWEEK
     Dates: start: 20160213
  10. CARDURA [Concomitant]
     Active Substance: DOXAZOSIN MESYLATE
     Indication: PRODUCT USED FOR UNKNOWN INDICATION
     Dosage: 1 MG MILLIGRAM(S), UNK
     Route: 048
     Dates: start: 201405, end: 201511
  11. POTASSIUM [Concomitant]
     Active Substance: POTASSIUM
     Indication: SUPPLEMENTATION THERAPY
     Dosage: 2.5 DF DOSAGE FORM, UNK
     Route: 048
     Dates: start: 2011, end: 201511
  12. ATENOLOL. [Concomitant]
     Active Substance: ATENOLOL
     Indication: PRODUCT USED FOR UNKNOWN INDICATION
     Dosage: 25 MG MILLIGRAM(S), QD
     Route: 048
     Dates: start: 2014, end: 201511
  13. ERGOCALCIFEROL. [Concomitant]
     Active Substance: ERGOCALCIFEROL
     Indication: SUPPLEMENTATION THERAPY
     Dosage: 200 DF DOSAGE FORM, QD
     Route: 048
     Dates: start: 20151108, end: 201511
  14. FLUORESCEIN [Concomitant]
     Active Substance: FLUORESCEIN
     Indication: DIAGNOSTIC PROCEDURE
     Dosage: 100 MG MILLIGRAM(S), AS NECESSARY
     Dates: start: 20150729
  15. BETADINE [Concomitant]
     Active Substance: POVIDONE-IODINE
     Indication: ANTIBIOTIC PROPHYLAXIS
     Dosage: 2 GTT DROP(S), UNK
     Route: 061
     Dates: start: 20110811
  16. WARFARIN [Concomitant]
     Active Substance: WARFARIN
     Indication: PRODUCT USED FOR UNKNOWN INDICATION
     Dosage: 2.5 MG MILLIGRAM(S), UNK
     Route: 048
     Dates: start: 20151108
  17. CHOLECALCIFEROL [Concomitant]
     Active Substance: CHOLECALCIFEROL
     Indication: SUPPLEMENTATION THERAPY
     Dosage: 2000 DF DOSAGE FORM, QD
     Route: 048
     Dates: start: 20151108, end: 201511
  18. MULTIVITAMIN                       /00097801/ [Concomitant]
     Active Substance: VITAMINS
     Indication: SUPPLEMENTATION THERAPY
     Dosage: UNK, QD
     Dates: start: 20151108
  19. VIGAMOX [Concomitant]
     Active Substance: MOXIFLOXACIN HYDROCHLORIDE
     Indication: PRODUCT USED FOR UNKNOWN INDICATION
     Dosage: 1 GTT DROP(S), TID
     Route: 061
     Dates: start: 20160129, end: 20160205
  20. PROPARACAINE HCL [Concomitant]
     Active Substance: PROPARACAINE HYDROCHLORIDE
     Indication: PREMEDICATION
     Dosage: 1 GTT DROP(S), AS NECESSARY
     Route: 061
     Dates: start: 20150729
  21. SYNTHROID [Concomitant]
     Active Substance: LEVOTHYROXINE SODIUM
     Indication: PRODUCT USED FOR UNKNOWN INDICATION
     Dosage: 125 DF DOSAGE FORM, UNK
     Route: 048
     Dates: start: 1991, end: 20151118
  22. PROPARACAINE                       /00143101/ [Concomitant]
     Indication: PREMEDICATION
     Dosage: 2 GTT DROP(S), AS NECESSARY
     Route: 061
  23. EYLEA [Suspect]
     Active Substance: AFLIBERCEPT
     Indication: AGE-RELATED MACULAR DEGENERATION
     Dosage: 2 MG MILLIGRAM(S), EVERY 4 WEEKS
     Route: 031
     Dates: start: 20150811
  24. PHENYLEPHRINE HYDROCHLORIDE. [Concomitant]
     Active Substance: PHENYLEPHRINE HYDROCHLORIDE
     Indication: PREMEDICATION
     Dosage: 1 GTT DROP(S), AS NECESSARY
     Route: 061
     Dates: start: 20150729

REACTIONS (1)
  - Pulmonary embolism [Fatal]

NARRATIVE: CASE EVENT DATE: 20160323
